FAERS Safety Report 9261861 (Version 2)
Quarter: 2013Q4

REPORT INFORMATION
  Report Type: Spontaneous
  Country: GB (occurrence: GB)
  Receive Date: 20130429
  Receipt Date: 20131024
  Transmission Date: 20140711
  Serious: Yes (Hospitalization, Other)
  Sender: FDA-Public Use
  Company Number: GB-MYLANLABS-2013S1008386

PATIENT
  Age: 22 Year
  Sex: Female

DRUGS (2)
  1. CITALOPRAM [Suspect]
     Indication: ANXIETY
     Dates: start: 20130318
  2. ZIMOVANE [Concomitant]
     Indication: PRODUCT USED FOR UNKNOWN INDICATION

REACTIONS (13)
  - Mobility decreased [Recovered/Resolved]
  - Dysarthria [Recovered/Resolved]
  - Hemiparesis [Recovered/Resolved]
  - Hypotension [Recovered/Resolved]
  - Chest discomfort [Recovered/Resolved]
  - Dizziness [Recovered/Resolved]
  - Dystonia [Recovered/Resolved]
  - Vision blurred [Recovered/Resolved]
  - Incoherent [Recovered/Resolved]
  - Hypoaesthesia [Recovered/Resolved]
  - Panic reaction [Recovered/Resolved]
  - Pupillary reflex impaired [Recovered/Resolved]
  - Paraesthesia [Recovered/Resolved]
